FAERS Safety Report 7597310-6 (Version None)
Quarter: 2011Q3

REPORT INFORMATION
  Report Type: 
  Country: None (occurrence: None)
  Receive Date: 20110708
  Receipt Date: 20110426
  Transmission Date: 20111222
  Serious: No
  Sender: FDA-Public Use
  Company Number: US-GLAXOSMITHKLINE-A0924590A

PATIENT
  Sex: Female

DRUGS (6)
  1. DIAZEPAM [Concomitant]
  2. OMEPRAZOLE [Concomitant]
  3. FLOVENT [Suspect]
     Indication: ASTHMA
     Dosage: 2PUFF TWICE PER DAY
     Route: 055
     Dates: start: 20100601
  4. MIRAPEX [Concomitant]
  5. FEXOFENADINE [Concomitant]
  6. PROAIR HFA [Concomitant]

REACTIONS (1)
  - DYSPNOEA [None]
